FAERS Safety Report 10653206 (Version 3)
Quarter: 2016Q3

REPORT INFORMATION
  Report Type: Report from Study
  Country: MY (occurrence: MY)
  Receive Date: 20141215
  Receipt Date: 20160827
  Transmission Date: 20161109
  Serious: Yes (Hospitalization, Other)
  Sender: FDA-Public Use
  Company Number: MY-B.I. PHARMACEUTICALS,INC./RIDGEFIELD-2014-BI-59411BI

PATIENT
  Age: 77 Year
  Sex: Male
  Weight: 68.7 kg

DRUGS (8)
  1. LOVASTATIN. [Concomitant]
     Active Substance: LOVASTATIN
     Indication: DYSLIPIDAEMIA
     Dosage: 40 MG
     Route: 048
     Dates: start: 20120730
  2. PERINDOPRIL [Concomitant]
     Active Substance: PERINDOPRIL
     Dosage: 8 MG
     Route: 048
     Dates: start: 20141203
  3. BI 1356 [Suspect]
     Active Substance: LINAGLIPTIN
     Route: 048
     Dates: start: 20141211
  4. VITAMIN C [Concomitant]
     Active Substance: ASCORBIC ACID
     Indication: VITAMIN SUPPLEMENTATION
     Dosage: 1 G
     Route: 048
     Dates: start: 20141006
  5. PERINDOPRIL [Concomitant]
     Active Substance: PERINDOPRIL
     Indication: HYPERTENSION
     Dosage: 4 MG
     Route: 048
  6. METFORMIN [Suspect]
     Active Substance: METFORMIN HYDROCHLORIDE
     Indication: DIABETES MELLITUS
     Dosage: 1 G
     Route: 048
  7. METFORMIN [Suspect]
     Active Substance: METFORMIN HYDROCHLORIDE
     Route: 048
     Dates: start: 20141211
  8. BI 1356 [Suspect]
     Active Substance: LINAGLIPTIN
     Indication: TYPE 2 DIABETES MELLITUS
     Dosage: 5 MG
     Route: 048
     Dates: start: 20120510

REACTIONS (3)
  - Hypoglycaemia [Recovered/Resolved]
  - Deafness neurosensory [Not Recovered/Not Resolved]
  - Vertigo positional [Recovered/Resolved]

NARRATIVE: CASE EVENT DATE: 20141201
